FAERS Safety Report 23612143 (Version 1)
Quarter: 2024Q1

REPORT INFORMATION
  Report Type: Report from Study
  Country: US (occurrence: None)
  Receive Date: 20240308
  Receipt Date: 20240308
  Transmission Date: 20240410
  Serious: Yes (Other)
  Sender: FDA-Public Use
  Company Number: 2024A051816

PATIENT
  Age: 68 Year
  Sex: Male

DRUGS (2)
  1. WAINUA [Suspect]
     Active Substance: EPLONTERSEN
     Indication: Acquired ATTR amyloidosis
     Route: 058
  2. EPIPEN [Concomitant]
     Active Substance: EPINEPHRINE
     Dosage: AS REQUIRED

REACTIONS (1)
  - Wheezing [Recovered/Resolved]

NARRATIVE: CASE EVENT DATE: 20240226
